FAERS Safety Report 5848139-8 (Version None)
Quarter: 2008Q3

REPORT INFORMATION
  Report Type: 
  Country: None (occurrence: None)
  Receive Date: 20080814
  Receipt Date: 20080814
  Transmission Date: 20090109
  Serious: Yes (Hospitalization)
  Sender: FDA-Public Use
  Company Number: None

PATIENT
  Sex: Female
  Weight: 52.73 kg

DRUGS (1)
  1. CISPLATIN [Suspect]
     Dosage: 314 MG
     Dates: end: 20061109

REACTIONS (4)
  - BODY TEMPERATURE INCREASED [None]
  - HYPOPHAGIA [None]
  - NEUTROPHIL COUNT DECREASED [None]
  - WHITE BLOOD CELL COUNT INCREASED [None]
